FAERS Safety Report 10642020 (Version 1)
Quarter: 2014Q4

REPORT INFORMATION
  Report Type: Spontaneous
  Country: CN (occurrence: CN)
  Receive Date: 20141209
  Receipt Date: 20141209
  Transmission Date: 20150529
  Serious: Yes (Other)
  Sender: FDA-Public Use
  Company Number: CN-ASTELLAS-2014US019509

PATIENT
  Age: 2 Year
  Sex: Male

DRUGS (1)
  1. PROGRAF [Suspect]
     Active Substance: TACROLIMUS\TACROLIMUS ANHYDROUS
     Indication: NEPHROTIC SYNDROME
     Route: 048
     Dates: start: 20141126, end: 20141205

REACTIONS (2)
  - Product use issue [Recovered/Resolved]
  - Oedematous pancreatitis [Not Recovered/Not Resolved]

NARRATIVE: CASE EVENT DATE: 20141126
